FAERS Safety Report 11468815 (Version 1)
Quarter: 2015Q3

REPORT INFORMATION
  Report Type: Spontaneous
  Country: US (occurrence: None)
  Receive Date: 20150904
  Receipt Date: 20150904
  Transmission Date: 20151125
  Serious: Yes (Other)
  Sender: FDA-Public Use
  Company Number: None

PATIENT
  Age: 72 Year
  Sex: Male

DRUGS (1)
  1. TACROLIMUS 1MG [Suspect]
     Active Substance: TACROLIMUS

REACTIONS (6)
  - Procedural pain [None]
  - Body temperature increased [None]
  - Headache [None]
  - Nausea [None]
  - Pain [None]
  - Drug dose omission [None]

NARRATIVE: CASE EVENT DATE: 20150902
